FAERS Safety Report 11918902 (Version 2)
Quarter: 2016Q3

REPORT INFORMATION
  Report Type: Spontaneous
  Country: US (occurrence: US)
  Receive Date: 20160115
  Receipt Date: 20160804
  Transmission Date: 20161109
  Serious: Yes (Other)
  Sender: FDA-Public Use
  Company Number: US-JNJFOC-20151205276

PATIENT
  Age: 49 Year
  Sex: Male
  Weight: 83.92 kg

DRUGS (2)
  1. LEVAQUIN [Suspect]
     Active Substance: LEVOFLOXACIN
     Indication: PNEUMONIA
     Route: 048
     Dates: start: 20040129, end: 20040208
  2. LEVAQUIN [Suspect]
     Active Substance: LEVOFLOXACIN
     Indication: PNEUMONIA
     Route: 042
     Dates: start: 20040126, end: 20040129

REACTIONS (3)
  - Neuropathy peripheral [Not Recovered/Not Resolved]
  - Neuritis [Unknown]
  - Tendon rupture [Unknown]

NARRATIVE: CASE EVENT DATE: 200402
